FAERS Safety Report 8239828-9 (Version None)
Quarter: 2012Q1

REPORT INFORMATION
  Report Type: 
  Country: None (occurrence: None)
  Receive Date: 20120328
  Receipt Date: 20120316
  Transmission Date: 20120608
  Serious: Yes (Other)
  Sender: FDA-Public Use
  Company Number: PHEH2012US004825

PATIENT
  Sex: Female
  Weight: 92.7 kg

DRUGS (3)
  1. ZOMETA [Suspect]
     Indication: BONE LOSS
     Dosage: 4 MG EVERY 3 TO 4 WEEKS
     Route: 042
     Dates: start: 20101018, end: 20120112
  2. ZOMETA [Suspect]
     Indication: BONE CANCER METASTATIC
  3. FASLODEX [Concomitant]
     Indication: BREAST CANCER METASTATIC
     Route: 030
     Dates: start: 20101018, end: 20111214

REACTIONS (1)
  - EXPOSED BONE IN JAW [None]
